FAERS Safety Report 8583589 (Version 2)
Quarter: 2014Q1

REPORT INFORMATION
  Report Type: Spontaneous
  Country: US (occurrence: US)
  Receive Date: 20120529
  Receipt Date: 20140127
  Transmission Date: 20141002
  Serious: Yes (Other)
  Sender: FDA-Public Use
  Company Number: US-BAYER-2012-051558

PATIENT
  Age: 39 Year
  Sex: Female
  Weight: 84.81 kg

DRUGS (3)
  1. BEYAZ [Suspect]
     Dosage: UNK
     Route: 048
     Dates: start: 20110920, end: 20120110
  2. MUSCLE RELAXANTS [Concomitant]
  3. STEROID [Concomitant]
     Indication: TEMPOROMANDIBULAR JOINT SYNDROME

REACTIONS (9)
  - Retinal artery occlusion [None]
  - Retinal artery occlusion [None]
  - Transient ischaemic attack [None]
  - Pain [None]
  - Emotional distress [None]
  - Depression [None]
  - Fear of death [None]
  - Nervousness [None]
  - Injury [None]
